FAERS Safety Report 7657315-3 (Version None)
Quarter: 2011Q3

REPORT INFORMATION
  Report Type: 
  Country: None (occurrence: None)
  Receive Date: 20110804
  Receipt Date: 20110725
  Transmission Date: 20111222
  Serious: Yes (Other)
  Sender: FDA-Public Use
  Company Number: PHHY2011US66764

PATIENT
  Sex: Female
  Weight: 81.088 kg

DRUGS (9)
  1. AMLODIPINE BESYLATE [Concomitant]
  2. HYDROXYCHLOROQUINE SULFATE [Concomitant]
  3. METOPROLOL TARTRATE [Concomitant]
  4. FEMARA [Suspect]
     Dosage: 2.5 MG, QD
  5. ANTIDEPRESSANTS [Concomitant]
  6. ACIPHEX [Concomitant]
  7. LEXAPRO [Concomitant]
  8. HORMONES NOS [Concomitant]
  9. TOPOL [Concomitant]

REACTIONS (5)
  - ARTERITIS [None]
  - DRY EYE [None]
  - HOT FLUSH [None]
  - TRIGGER FINGER [None]
  - ARTHRALGIA [None]
